FAERS Safety Report 7948824-8 (Version None)
Quarter: 2011Q4

REPORT INFORMATION
  Report Type: 
  Country: None (occurrence: None)
  Receive Date: 20111130
  Receipt Date: 20111120
  Transmission Date: 20120403
  Serious: Yes (Congenital Anomaly)
  Sender: FDA-Public Use
  Company Number: PHHY2011AU103558

PATIENT

DRUGS (2)
  1. TOPIRAMATE [Suspect]
     Route: 064
  2. CARBAMAZEPINE [Suspect]
     Route: 064

REACTIONS (2)
  - KIDNEY DUPLEX [None]
  - FOETAL EXPOSURE DURING PREGNANCY [None]
